FAERS Safety Report 4292007-2 (Version None)
Quarter: 2004Q1

REPORT INFORMATION
  Report Type: 
  Country: None (occurrence: None)
  Receive Date: 20040126
  Receipt Date: 20030922
  Transmission Date: 20041129
  Serious: No
  Sender: FDA-Public Use
  Company Number: USA030947922

PATIENT
  Age: 84 Year
  Sex: Female

DRUGS (7)
  1. FORTEO [Suspect]
     Dates: start: 20030901
  2. NITROGLYCERIN (CLYCERYL TRINITRATE) [Concomitant]
  3. NORVASC [Concomitant]
  4. ISOBIDE (ISOSORBIDE) [Concomitant]
  5. NEXIUM [Concomitant]
  6. INDERAL LA [Concomitant]
  7. SYNTHROID [Concomitant]

REACTIONS (7)
  - ANGINA PECTORIS [None]
  - CHEST DISCOMFORT [None]
  - CHEST PAIN [None]
  - INJECTION SITE ERYTHEMA [None]
  - INJECTION SITE HAEMORRHAGE [None]
  - INJECTION SITE PAIN [None]
  - PALPITATIONS [None]
